FAERS Safety Report 23798343 (Version 1)
Quarter: 2024Q2

REPORT INFORMATION
  Report Type: Spontaneous
  Country: CH (occurrence: CH)
  Receive Date: 20240430
  Receipt Date: 20240430
  Transmission Date: 20240716
  Serious: Yes (Other)
  Sender: FDA-Public Use
  Company Number: CH-BAYER-2024A052056

PATIENT
  Age: 70 Year
  Sex: Female

DRUGS (1)
  1. EYLEA HD [Suspect]
     Active Substance: AFLIBERCEPT
     Indication: Product used for unknown indication
     Dosage: 8 MG, SOLUTION FOR INJECTION, 114.3 MG/ML
     Route: 031

REACTIONS (2)
  - Intra-ocular injection complication [Unknown]
  - Photopsia [Not Recovered/Not Resolved]
